FAERS Safety Report 21577974 (Version 2)
Quarter: 2023Q1

REPORT INFORMATION
  Report Type: Report from Study
  Country: US (occurrence: US)
  Receive Date: 20221110
  Receipt Date: 20230315
  Transmission Date: 20230417
  Serious: No
  Sender: FDA-Public Use
  Company Number: US-ABBVIE-22K-163-4492522-00

PATIENT
  Age: 76 Year
  Sex: Male

DRUGS (2)
  1. IMBRUVICA [Suspect]
     Active Substance: IBRUTINIB
     Indication: Chronic lymphocytic leukaemia
     Route: 048
     Dates: start: 20210921
  2. IMBRUVICA [Suspect]
     Active Substance: IBRUTINIB
     Indication: Chronic lymphocytic leukaemia
     Route: 048
     Dates: start: 202109

REACTIONS (8)
  - Angiopathy [Unknown]
  - COVID-19 [Unknown]
  - Atrial fibrillation [Unknown]
  - Scab [Unknown]
  - Haemoptysis [Unknown]
  - Oedema peripheral [Unknown]
  - Ulcer [Unknown]
  - Rash macular [Unknown]

NARRATIVE: CASE EVENT DATE: 20221101
